FAERS Safety Report 17162963 (Version 1)
Quarter: 2019Q4

REPORT INFORMATION
  Report Type: Spontaneous
  Country: US (occurrence: US)
  Receive Date: 20191216
  Receipt Date: 20191216
  Transmission Date: 20200122
  Serious: Yes (Death, Other)
  Sender: FDA-Public Use
  Company Number: None

PATIENT
  Age: 75 Year
  Sex: Male

DRUGS (1)
  1. LUPRON DEPOT [Suspect]
     Active Substance: LEUPROLIDE ACETATE
     Dosage: ?          OTHER FREQUENCY:EVERY 4 MONTHS;?
     Route: 030
     Dates: start: 20170222, end: 20191119

REACTIONS (1)
  - Death [None]

NARRATIVE: CASE EVENT DATE: 20191119
